FAERS Safety Report 4494308-1 (Version None)
Quarter: 2004Q4

REPORT INFORMATION
  Report Type: 
  Country: None (occurrence: None)
  Receive Date: 20041105
  Receipt Date: 20040908
  Transmission Date: 20050328
  Serious: Yes (Other)
  Sender: FDA-Public Use
  Company Number: AU-GLAXOSMITHKLINE-B0345217A

PATIENT
  Age: 66 Year
  Sex: Female

DRUGS (6)
  1. AVANDIA [Suspect]
     Indication: GLYCOSYLATED HAEMOGLOBIN INCREASED
     Dosage: 4MG PER DAY
     Route: 048
     Dates: start: 20040127
  2. DIAMICRON [Concomitant]
  3. PRINIVIL [Concomitant]
     Indication: HYPOTENSION
  4. SIMVASTATIN [Concomitant]
     Indication: BLOOD CHOLESTEROL INCREASED
  5. SOLPRIN [Concomitant]
  6. TRAMAL [Concomitant]
     Dosage: 100MG TWICE PER DAY

REACTIONS (3)
  - FEELING ABNORMAL [None]
  - HUNGER [None]
  - HYPOGLYCAEMIA [None]
